FAERS Safety Report 9531499 (Version 1)
Quarter: 2013Q3

REPORT INFORMATION
  Report Type: Spontaneous
  Country: NG (occurrence: None)
  Receive Date: 20130916
  Receipt Date: 20130916
  Transmission Date: 20140515
  Serious: No
  Sender: FDA-Public Use
  Company Number: None

PATIENT
  Age: 34 Year
  Sex: Male
  Weight: 79 kg

DRUGS (2)
  1. DEXAMETHASONE [Suspect]
     Indication: ACNE
     Dosage: 0.5MG (4  PILLS)
     Route: 048
     Dates: start: 2006, end: 201307
  2. DEXAMETHASONE [Suspect]
     Indication: INCREASED APPETITE
     Dosage: 0.5MG (4  PILLS)
     Route: 048
     Dates: start: 2006, end: 201307

REACTIONS (9)
  - Drug dependence [None]
  - Drug abuse [None]
  - Asthenia [None]
  - Muscular weakness [None]
  - Decreased appetite [None]
  - Abdominal discomfort [None]
  - Vomiting [None]
  - Nasopharyngitis [None]
  - Drug withdrawal syndrome [None]
